FAERS Safety Report 17808267 (Version 1)
Quarter: 2020Q3

REPORT INFORMATION
  Report Type: Report from Study
  Country: US (occurrence: US)
  Receive Date: 20200520
  Receipt Date: 20200520
  Transmission Date: 20201105
  Serious: No
  Sender: FDA-Public Use
  Company Number: NVSC2017US008664

PATIENT
  Sex: Female

DRUGS (6)
  1. EPINASTINE HYDROCHLORIDE. [Suspect]
     Active Substance: EPINASTINE HYDROCHLORIDE
     Indication: PRODUCT USED FOR UNKNOWN INDICATION
     Route: 065
  2. OLOPATADINE. [Suspect]
     Active Substance: OLOPATADINE
     Indication: PRODUCT USED FOR UNKNOWN INDICATION
     Route: 065
  3. CIPROFLOXACIN. [Suspect]
     Active Substance: CIPROFLOXACIN
     Indication: PRODUCT USED FOR UNKNOWN INDICATION
     Route: 065
  4. KETOTIFEN [Suspect]
     Active Substance: KETOTIFEN
     Indication: PRODUCT USED FOR UNKNOWN INDICATION
     Route: 065
  5. PATADAY [Suspect]
     Active Substance: OLOPATADINE HYDROCHLORIDE
     Indication: PRODUCT USED FOR UNKNOWN INDICATION
     Route: 065
  6. ZADITOR [Suspect]
     Active Substance: KETOTIFEN FUMARATE
     Indication: PRODUCT USED FOR UNKNOWN INDICATION
     Route: 065

REACTIONS (2)
  - Hypersensitivity [Unknown]
  - Treatment failure [Unknown]
